FAERS Safety Report 22070475 (Version 8)
Quarter: 2024Q3

REPORT INFORMATION
  Report Type: Report from Study
  Country: US (occurrence: US)
  Receive Date: 20230307
  Receipt Date: 20240705
  Transmission Date: 20241017
  Serious: Yes (Other)
  Sender: JAZZ
  Company Number: US-JAZZ PHARMACEUTICALS-2023-US-004996

PATIENT
  Age: 34 Year
  Sex: Male

DRUGS (2)
  1. XYWAV [Suspect]
     Active Substance: CALCIUM OXYBATE\MAGNESIUM OXYBATE\POTASSIUM OXYBATE\SODIUM OXYBATE
     Indication: Narcolepsy
     Dosage: 4.5 GRAM, BID
  2. XYWAV [Suspect]
     Active Substance: CALCIUM OXYBATE\MAGNESIUM OXYBATE\POTASSIUM OXYBATE\SODIUM OXYBATE
     Indication: Cataplexy
     Dosage: 4.5 GRAM, QD

REACTIONS (11)
  - Nasal septum deviation [Recovered/Resolved]
  - Chest discomfort [Unknown]
  - Hypopnoea [Recovered/Resolved]
  - Pharyngeal swelling [Recovered/Resolved]
  - Musculoskeletal discomfort [Unknown]
  - Confusional state [Unknown]
  - Herpes zoster [Unknown]
  - Weight increased [Unknown]
  - Anxiety [Unknown]
  - Tooth infection [Unknown]
  - Product dose omission issue [Unknown]

NARRATIVE: CASE EVENT DATE: 20230204
